FAERS Safety Report 21418162 (Version 1)
Quarter: 2022Q4

REPORT INFORMATION
  Report Type: Spontaneous
  Country: US (occurrence: US)
  Receive Date: 20221006
  Receipt Date: 20221006
  Transmission Date: 20230113
  Serious: No
  Sender: FDA-Public Use
  Company Number: US-ORGANON-O2209USA001406

PATIENT
  Age: 17 Year
  Sex: Female

DRUGS (4)
  1. REMERON [Suspect]
     Active Substance: MIRTAZAPINE
     Indication: Sleep disorder
     Dosage: 15 MILLIGRAM AT BEDTIME
  2. REMERON [Suspect]
     Active Substance: MIRTAZAPINE
     Indication: Appetite disorder
  3. ONDANSETRON [Concomitant]
     Active Substance: ONDANSETRON
     Dosage: UNK
  4. CAPSAICIN [Concomitant]
     Active Substance: CAPSAICIN
     Dosage: UNK
     Route: 061

REACTIONS (2)
  - Product use in unapproved indication [Unknown]
  - Product use issue [Unknown]
